FAERS Safety Report 7772062-5 (Version None)
Quarter: 2011Q3

REPORT INFORMATION
  Report Type: 
  Country: None (occurrence: None)
  Receive Date: 20110922
  Receipt Date: 20110112
  Transmission Date: 20111222
  Serious: No
  Sender: FDA-Public Use
  Company Number: US-ASTRAZENECA-2007UW02066

PATIENT
  Age: 566 Month
  Sex: Female
  Weight: 92.1 kg

DRUGS (8)
  1. AMOXICILLIN [Concomitant]
     Dates: start: 20060701
  2. ZETIA [Concomitant]
     Dates: start: 20070413
  3. SEROQUEL [Suspect]
     Route: 048
     Dates: start: 20061201
  4. CLONAZEPAM [Concomitant]
     Dates: start: 20061106
  5. OXYCODONE AND ACETAMINOPHEN [Concomitant]
     Dosage: 5/325
     Dates: start: 20060629
  6. SEROQUEL [Suspect]
     Indication: BIPOLAR DISORDER
     Route: 048
     Dates: start: 19980101
  7. SEROQUEL [Suspect]
     Route: 048
     Dates: start: 20070212, end: 20090622
  8. HYDROCODONE BITARTRATE AND ACETAMINOPHEN [Concomitant]
     Dosage: 5/535
     Dates: start: 20060802

REACTIONS (4)
  - DIABETES MELLITUS [None]
  - PANCREATIC DISORDER [None]
  - WEIGHT INCREASED [None]
  - DIABETES MELLITUS INADEQUATE CONTROL [None]
